FAERS Safety Report 5174551-9 (Version None)
Quarter: 2006Q4

REPORT INFORMATION
  Report Type: 
  Country: None (occurrence: None)
  Receive Date: 20061214
  Receipt Date: 20060606
  Transmission Date: 20070319
  Serious: No
  Sender: FDA-Public Use
  Company Number: US-AMGEN-KDL182008

PATIENT
  Sex: Female

DRUGS (5)
  1. ENBREL [Suspect]
     Indication: RHEUMATOID ARTHRITIS
     Route: 058
     Dates: start: 20060516
  2. METHOTREXATE [Concomitant]
     Route: 048
     Dates: start: 20000101
  3. CYMBALTA [Concomitant]
     Dates: start: 20060516
  4. FOLIC ACID [Concomitant]
  5. ALEVE [Concomitant]

REACTIONS (6)
  - COUGH [None]
  - INJECTION SITE BRUISING [None]
  - LARYNGITIS [None]
  - PHARYNGOLARYNGEAL PAIN [None]
  - SINUSITIS [None]
  - STREPTOCOCCAL INFECTION [None]
